FAERS Safety Report 9424230 (Version 1)
Quarter: 2013Q3

REPORT INFORMATION
  Report Type: Spontaneous
  Country: BR (occurrence: BR)
  Receive Date: 20130729
  Receipt Date: 20130729
  Transmission Date: 20140515
  Serious: Yes (Disabling)
  Sender: FDA-Public Use
  Company Number: BR-SANOFI-AVENTIS-2013SA073940

PATIENT
  Age: 57 Year
  Sex: Male
  Weight: 108 kg

DRUGS (3)
  1. GLIMEPIRIDE [Suspect]
     Indication: DIABETES MELLITUS
     Route: 048
     Dates: start: 20130702
  2. GLIMEPIRIDE [Suspect]
     Indication: DIABETES MELLITUS
     Route: 048
     Dates: start: 20130709
  3. TENORETIC [Concomitant]
     Indication: HYPERTENSION
     Dosage: STRENGTH: 50 MG
     Route: 048
     Dates: start: 2000

REACTIONS (1)
  - Visual acuity reduced [Not Recovered/Not Resolved]
